FAERS Safety Report 4641382-5 (Version None)
Quarter: 2005Q2

REPORT INFORMATION
  Report Type: 
  Country: None (occurrence: None)
  Receive Date: 20050421
  Receipt Date: 20050407
  Transmission Date: 20051028
  Serious: Yes (Hospitalization, Other)
  Sender: FDA-Public Use
  Company Number: US-GLAXOSMITHKLINE-A0553138A

PATIENT
  Age: 46 Year
  Sex: Male
  Weight: 106.8 kg

DRUGS (1)
  1. BC HEADACHE POWDER [Suspect]
     Indication: HEADACHE
     Route: 048

REACTIONS (2)
  - CORONARY ARTERY OCCLUSION [None]
  - HYPOAESTHESIA [None]
